FAERS Safety Report 17288102 (Version 3)
Quarter: 2020Q3

REPORT INFORMATION
  Report Type: Spontaneous
  Country: US (occurrence: US)
  Receive Date: 20200120
  Receipt Date: 20200731
  Transmission Date: 20201102
  Serious: Yes (Other)
  Sender: FDA-Public Use
  Company Number: US-BAYER-2020-009204

PATIENT
  Age: 34 Year
  Sex: Female

DRUGS (1)
  1. KYLEENA [Suspect]
     Active Substance: LEVONORGESTREL
     Indication: CONTRACEPTION
     Dosage: 17.5 MCG/24HR, CONT
     Route: 015
     Dates: start: 20181214, end: 20190509

REACTIONS (3)
  - Pelvic pain [Recovered/Resolved]
  - Drug ineffective [None]
  - Ectopic pregnancy with contraceptive device [Recovered/Resolved]

NARRATIVE: CASE EVENT DATE: 20190509
